FAERS Safety Report 8843160 (Version 1)
Quarter: 2012Q4

REPORT INFORMATION
  Report Type: 
  Country: US (occurrence: US)
  Receive Date: 20121016
  Receipt Date: 20121016
  Transmission Date: 20130627
  Serious: Yes (Other)
  Sender: FDA-Public Use
  Company Number: US-ROCHE-1141103

PATIENT
  Sex: Male

DRUGS (4)
  1. NUTROPIN [Suspect]
     Indication: DWARFISM
     Route: 065
  2. FLAGYL [Concomitant]
  3. ASACOL [Concomitant]
  4. PREDNISONE [Concomitant]

REACTIONS (3)
  - Multiple fractures [Unknown]
  - Osteoporosis [Unknown]
  - Growth retardation [Unknown]
